FAERS Safety Report 21279292 (Version 1)
Quarter: 2022Q3

REPORT INFORMATION
  Report Type: Spontaneous
  Country: US (occurrence: None)
  Receive Date: 20220901
  Receipt Date: 20220901
  Transmission Date: 20221026
  Serious: No
  Sender: FDA-Public Use
  Company Number: 2022A299065

PATIENT
  Age: 67 Year
  Sex: Female
  Weight: 58.1 kg

DRUGS (4)
  1. SYMBICORT [Suspect]
     Active Substance: BUDESONIDE\FORMOTEROL FUMARATE DIHYDRATE
     Indication: Chronic obstructive pulmonary disease
     Dosage: 160/4.5 MCG, VIA INHALATION, 2 PUFFS 2 TIMES A DAY, FOR 5 YEARS
     Route: 055
  2. BUDESONIDE\FORMOTEROL\GLYCOPYRRONIUM [Concomitant]
     Active Substance: BUDESONIDE\FORMOTEROL\GLYCOPYRRONIUM
     Indication: Chronic obstructive pulmonary disease
     Dosage: 160/9/4.8 MCG, VIA INHALATION, 2 PUFFS 2 TIMES A DAY, FOR 6 MONTHS
     Route: 055
     Dates: start: 2022
  3. BUDESONIDE\FORMOTEROL\GLYCOPYRRONIUM [Concomitant]
     Active Substance: BUDESONIDE\FORMOTEROL\GLYCOPYRRONIUM
     Indication: Chronic obstructive pulmonary disease
     Dosage: 160/9/4.8 MCG, VIA INHALATION, 2 PUFFS 2 TIMES A DAY, FOR 6 MONTHS
     Route: 055
     Dates: start: 2022
  4. BUDESONIDE\FORMOTEROL\GLYCOPYRRONIUM [Concomitant]
     Active Substance: BUDESONIDE\FORMOTEROL\GLYCOPYRRONIUM
     Indication: Chronic obstructive pulmonary disease
     Dosage: 160/9/4.8 MCG, VIA INHALATION, 2 PUFFS 2 TIMES A DAY, FOR 6 MONTHS
     Route: 055
     Dates: start: 2022

REACTIONS (4)
  - Emphysema [Unknown]
  - Device use issue [Unknown]
  - Incorrect dose administered by product [Unknown]
  - Device ineffective [Unknown]

NARRATIVE: CASE EVENT DATE: 20220101
